FAERS Safety Report 22626023 (Version 1)
Quarter: 2023Q2

REPORT INFORMATION
  Report Type: Spontaneous
  Country: US (occurrence: US)
  Receive Date: 20230621
  Receipt Date: 20230621
  Transmission Date: 20230722
  Serious: Yes (Hospitalization, Other)
  Sender: FDA-Public Use
  Company Number: US-Hikma Pharmaceuticals USA Inc.-US-H14001-23-01959

PATIENT
  Age: 59 Year
  Sex: Female
  Weight: 69.9 kg

DRUGS (17)
  1. LEUCOVORIN [Suspect]
     Active Substance: LEUCOVORIN
     Indication: Adenocarcinoma gastric
     Route: 042
     Dates: start: 20230315
  2. LEUCOVORIN [Suspect]
     Active Substance: LEUCOVORIN
     Route: 042
     Dates: start: 20230512
  3. OXALIPLATIN [Suspect]
     Active Substance: OXALIPLATIN
     Indication: Adenocarcinoma gastric
     Route: 042
     Dates: start: 20230315
  4. OXALIPLATIN [Suspect]
     Active Substance: OXALIPLATIN
     Route: 042
     Dates: start: 20230512
  5. FLUOROURACIL [Suspect]
     Active Substance: FLUOROURACIL
     Indication: Adenocarcinoma gastric
     Dosage: BOLUS 400 MG/M2, PUMP 2400 MG/M2
     Route: 042
     Dates: start: 20230315
  6. FLUOROURACIL [Suspect]
     Active Substance: FLUOROURACIL
     Dosage: BOLUS 748 MILLIGRAM/SQ.METER, PUMP 4488
     Route: 042
     Dates: start: 20230512
  7. NIVOLUMAB [Suspect]
     Active Substance: NIVOLUMAB
     Indication: Adenocarcinoma gastric
     Route: 042
     Dates: start: 20230315
  8. NIVOLUMAB [Suspect]
     Active Substance: NIVOLUMAB
     Route: 042
     Dates: start: 20230512
  9. LORAZEPAM [Concomitant]
     Active Substance: LORAZEPAM
     Indication: Prophylaxis
     Dosage: UNKNOWN
     Route: 065
     Dates: start: 20230315
  10. ACYCLOVIR SODIUM [Concomitant]
     Active Substance: ACYCLOVIR SODIUM
     Indication: Genital herpes
     Dosage: UNKNOWN
     Route: 065
  11. LISINOPRIL [Concomitant]
     Active Substance: LISINOPRIL
     Indication: Hypertension
     Dosage: UNKNOWN
     Route: 065
     Dates: start: 20190120
  12. FAMOTIDINE [Concomitant]
     Active Substance: FAMOTIDINE
     Indication: Gastrooesophageal reflux disease
     Dosage: UNKNOWN
     Route: 065
     Dates: start: 20230331
  13. PAROXETINE [Concomitant]
     Active Substance: PAROXETINE
     Indication: Generalised anxiety disorder
     Dosage: UNKNOWN
     Route: 065
     Dates: start: 20061027
  14. PAROXETINE [Concomitant]
     Active Substance: PAROXETINE
     Indication: Depression
  15. PAROXETINE [Concomitant]
     Active Substance: PAROXETINE
     Indication: Panic disorder
  16. OLANZAPINE [Concomitant]
     Active Substance: OLANZAPINE
     Indication: Prophylaxis of nausea and vomiting
     Dosage: UNKNOWN
     Route: 065
     Dates: start: 20230317
  17. VITAMINS [Concomitant]
     Active Substance: VITAMINS
     Indication: Vitamin supplementation
     Dosage: UNKNOWN
     Route: 065
     Dates: start: 20230207

REACTIONS (13)
  - Febrile neutropenia [Recovered/Resolved]
  - Pyrexia [Recovered/Resolved]
  - Chills [Unknown]
  - Malaise [Unknown]
  - Headache [Unknown]
  - Dyspnoea [Unknown]
  - Pancytopenia [Unknown]
  - Hyponatraemia [Unknown]
  - White blood cell count decreased [Recovered/Resolved]
  - Platelet count decreased [Unknown]
  - Neutrophil count decreased [Recovered/Resolved]
  - Blood sodium decreased [Unknown]
  - Dyspnoea at rest [Unknown]

NARRATIVE: CASE EVENT DATE: 20230515
